FAERS Safety Report 6390980-X (Version None)
Quarter: 2009Q4

REPORT INFORMATION
  Report Type: 
  Country: None (occurrence: None)
  Receive Date: 20091006
  Receipt Date: 20090924
  Transmission Date: 20100525
  Serious: Yes (Other)
  Sender: FDA-Public Use
  Company Number: US-ELI_LILLY_AND_COMPANY-US200909006044

PATIENT
  Sex: Male

DRUGS (8)
  1. ZYPREXA [Suspect]
     Dosage: 20 MG, UNK
     Dates: start: 20040101
  2. CYMBALTA [Suspect]
     Indication: DEPRESSION
     Dosage: 60 MG, UNK
     Dates: start: 20080901
  3. CYMBALTA [Suspect]
     Dosage: 30 MG, UNK
     Dates: start: 20090801
  4. ABILIFY [Concomitant]
     Dosage: 1 D/F, UNK
  5. SEROQUEL [Concomitant]
     Dosage: 1 D/F, UNK
  6. INVEGA [Concomitant]
     Dosage: 1 D/F, UNK
  7. COGENTIN [Concomitant]
     Dosage: 1 D/F, UNK
  8. XANAX [Concomitant]
     Dosage: 1.5 MG, UNK

REACTIONS (7)
  - ALANINE AMINOTRANSFERASE INCREASED [None]
  - BLOOD CHOLESTEROL INCREASED [None]
  - BLOOD GLUCOSE INCREASED [None]
  - HEPATIC ENZYME INCREASED [None]
  - JAUNDICE [None]
  - LIPIDS INCREASED [None]
  - WEIGHT INCREASED [None]
